FAERS Safety Report 20672798 (Version 1)
Quarter: 2022Q2

REPORT INFORMATION
  Report Type: Spontaneous
  Country: MY (occurrence: MY)
  Receive Date: 20220405
  Receipt Date: 20220405
  Transmission Date: 20220721
  Serious: Yes (Other)
  Sender: FDA-Public Use
  Company Number: MY-NOVARTISPH-NVSC2022MY061750

PATIENT
  Age: 63 Year
  Sex: Male

DRUGS (6)
  1. BROLUCIZUMAB [Suspect]
     Active Substance: BROLUCIZUMAB
     Indication: Polypoidal choroidal vasculopathy
     Dosage: UNK (1ST DOSE)
     Route: 031
     Dates: start: 20210612
  2. BROLUCIZUMAB [Suspect]
     Active Substance: BROLUCIZUMAB
     Dosage: UNK (2ND DOSE)
     Route: 031
     Dates: start: 20210710
  3. BROLUCIZUMAB [Suspect]
     Active Substance: BROLUCIZUMAB
     Dosage: UNK (3RD DOSE)
     Route: 031
     Dates: start: 20210814
  4. BROLUCIZUMAB [Suspect]
     Active Substance: BROLUCIZUMAB
     Dosage: UNK (4TH DOSE) (6 WEEKS APART FROM 3RD LOADING DOSE)
     Route: 031
     Dates: start: 20210925
  5. BROLUCIZUMAB [Suspect]
     Active Substance: BROLUCIZUMAB
     Dosage: UNK (5TH DOSE) (8 WEEKS APART FROM 4TH DOSE)
     Route: 031
     Dates: start: 20211121
  6. BROLUCIZUMAB [Suspect]
     Active Substance: BROLUCIZUMAB
     Dosage: UNK (6TH DOSE) (LAST DOSE BEFORE ADVERSE EVENT)
     Route: 031
     Dates: start: 20220219

REACTIONS (6)
  - Uveitis [Unknown]
  - Keratic precipitates [Unknown]
  - Vitritis [Unknown]
  - Vision blurred [Unknown]
  - Visual acuity reduced [Recovering/Resolving]
  - Product use in unapproved indication [Unknown]

NARRATIVE: CASE EVENT DATE: 20220315
